FAERS Safety Report 6002351-6 (Version None)
Quarter: 2008Q4

REPORT INFORMATION
  Report Type: 
  Country: None (occurrence: None)
  Receive Date: 20081215
  Receipt Date: 20071112
  Transmission Date: 20090506
  Serious: No
  Sender: FDA-Public Use
  Company Number: US-AMGEN-KDL252277

PATIENT
  Sex: Female

DRUGS (4)
  1. ENBREL [Suspect]
     Indication: PSORIATIC ARTHROPATHY
     Route: 058
     Dates: start: 20071010
  2. ENBREL [Suspect]
     Indication: PSORIASIS
  3. LEFLUNOMIDE [Concomitant]
     Dates: start: 20060101
  4. PLAQUENIL [Concomitant]
     Dates: start: 20040101

REACTIONS (6)
  - INJECTION SITE ERYTHEMA [None]
  - INJECTION SITE HAEMATOMA [None]
  - INJECTION SITE PRURITUS [None]
  - INJECTION SITE RASH [None]
  - INJECTION SITE SWELLING [None]
  - INJECTION SITE WARMTH [None]
